FAERS Safety Report 5157304-7 (Version None)
Quarter: 2006Q4

REPORT INFORMATION
  Report Type: 
  Country: None (occurrence: None)
  Receive Date: 20061127
  Receipt Date: 20061025
  Transmission Date: 20070319
  Serious: Yes (Other)
  Sender: FDA-Public Use
  Company Number: PHNU2006DE03541

PATIENT
  Age: 79 Year
  Sex: Female
  Weight: 77 kg

DRUGS (19)
  1. ZOMETA [Suspect]
     Indication: MULTIPLE MYELOMA
     Dosage: 4 MG, QMO
     Route: 042
     Dates: start: 20060425, end: 20060919
  2. ALLOPURINOL [Suspect]
     Indication: HYPERURICAEMIA
     Dosage: 300 MG,/DAY
     Route: 048
     Dates: end: 20061024
  3. IBUPROFEN [Suspect]
     Indication: PAIN
     Dosage: 600 MG, TID
     Route: 048
     Dates: start: 20060502, end: 20060907
  4. METAMIZOLE [Concomitant]
     Indication: PAIN
     Dosage: 0.5 G, TID
     Route: 065
     Dates: start: 20060901
  5. OMEPRAZOLE [Concomitant]
     Dosage: 20 MG/DAY
     Route: 065
  6. FUROSEMIDE [Concomitant]
     Dosage: 80 MG, QD
     Route: 065
  7. POTASSIUM ACETATE [Concomitant]
     Dosage: 3 DF/DAY
     Route: 065
  8. BRISERIN N [Concomitant]
     Dosage: 1 DF/DAY
     Route: 065
  9. CALCIMAGON-D3 [Concomitant]
     Route: 065
  10. MELPHALAN [Concomitant]
     Dosage: 24 MG/DAY
     Route: 065
     Dates: start: 20060502
  11. MELPHALAN [Concomitant]
     Dosage: 24 MG/DAY
     Route: 065
     Dates: start: 20060530
  12. MELPHALAN [Concomitant]
     Dosage: 24 MG/DAY
     Route: 065
     Dates: start: 20060627
  13. MELPHALAN [Concomitant]
     Dosage: 18 MG/DAY
     Route: 065
     Dates: start: 20060822
  14. MELPHALAN [Concomitant]
     Dosage: 18 MG/DAY
     Route: 065
     Dates: start: 20060919
  15. PREDNISOLONE [Concomitant]
     Dosage: 100 MG/DAY
     Route: 065
     Dates: start: 20060502
  16. PREDNISOLONE [Concomitant]
     Dosage: 100 MG/DAY
     Route: 065
     Dates: start: 20060530
  17. PREDNISOLONE [Concomitant]
     Dosage: 100 MG/DAY
     Route: 065
     Dates: start: 20060627
  18. PREDNISOLONE [Concomitant]
     Dosage: 75 MG/DAY
     Route: 065
     Dates: start: 20060822
  19. PREDNISOLONE [Concomitant]
     Dosage: 75 MG/DAY
     Route: 065
     Dates: start: 20060919

REACTIONS (13)
  - ANAEMIA [None]
  - ATRIAL FIBRILLATION [None]
  - BLOOD CREATININE INCREASED [None]
  - BLOOD UREA INCREASED [None]
  - CREATININE RENAL CLEARANCE DECREASED [None]
  - GLOMERULONEPHROPATHY [None]
  - NEUTROPENIA [None]
  - OEDEMA [None]
  - PROTEINURIA [None]
  - RENAL DISORDER [None]
  - RENAL FAILURE CHRONIC [None]
  - RENAL TUBULAR NECROSIS [None]
  - TACHYARRHYTHMIA [None]
